FAERS Safety Report 15249515 (Version 1)
Quarter: 2018Q3

REPORT INFORMATION
  Report Type: Spontaneous
  Country: US (occurrence: US)
  Receive Date: 20180807
  Receipt Date: 20180807
  Transmission Date: 20181010
  Serious: No
  Sender: FDA-Public Use
  Company Number: US-PERRIGO-18US004293

PATIENT
  Age: 48 Year
  Sex: Female
  Weight: 77.98 kg

DRUGS (2)
  1. ASPIRIN                            /00002701/ [Concomitant]
     Active Substance: ASPIRIN
     Indication: CEREBROVASCULAR ACCIDENT
     Dosage: UNK
     Route: 048
     Dates: start: 2008
  2. LORATADINE. [Suspect]
     Active Substance: LORATADINE
     Indication: SINUSITIS
     Dosage: 10 MG, SINGLE
     Route: 048
     Dates: start: 201804, end: 201804

REACTIONS (4)
  - Sensation of foreign body [Recovered/Resolved]
  - Hypersensitivity [Recovered/Resolved]
  - Off label use [Recovered/Resolved]
  - Dysphagia [Recovered/Resolved]

NARRATIVE: CASE EVENT DATE: 201804
